FAERS Safety Report 4340578-X (Version None)
Quarter: 2004Q2

REPORT INFORMATION
  Report Type: 
  Country: None (occurrence: None)
  Receive Date: 20040414
  Receipt Date: 20040329
  Transmission Date: 20050107
  Serious: Yes (Other)
  Sender: FDA-Public Use
  Company Number: 2004-DE-01621GD

PATIENT
  Age: 21 Year
  Sex: Female

DRUGS (3)
  1. AZATHIOPRINE [Suspect]
     Indication: CROHN'S DISEASE
  2. METHOTREXATE [Suspect]
     Indication: CROHN'S DISEASE
     Dosage: 6 INFUSIONS OF 20 MG AT WEEKS 0-5; SEE IMAGE
  3. INFLIXIMAB (INFLIXIMAB) [Suspect]
     Indication: CROHN'S DISEASE
     Dosage: 5MG/KG OVER 2 H REPEATED AFTER 2 AND 6 WEEKS (NR), IV
     Route: 042

REACTIONS (2)
  - DRUG INTOLERANCE [None]
  - THERAPY NON-RESPONDER [None]
